FAERS Safety Report 25109922 (Version 1)
Quarter: 2025Q1

REPORT INFORMATION
  Report Type: Spontaneous
  Country: US (occurrence: US)
  Receive Date: 20250324
  Receipt Date: 20250324
  Transmission Date: 20250409
  Serious: No
  Sender: SANOFI AVENTIS
  Company Number: US-SANOFI-02454651

PATIENT
  Age: 77 Year
  Sex: Male

DRUGS (1)
  1. LANTUS SOLOSTAR [Suspect]
     Active Substance: INSULIN GLARGINE
     Indication: Type 2 diabetes mellitus
     Dosage: (17-20 IU) , QD
     Route: 065
     Dates: start: 202503

REACTIONS (3)
  - Blood glucose fluctuation [Unknown]
  - Intentional product misuse [Unknown]
  - Wrong technique in product usage process [Unknown]
